FAERS Safety Report 14319081 (Version 3)
Quarter: 2018Q3

REPORT INFORMATION
  Report Type: Spontaneous
  Country: IT (occurrence: IT)
  Receive Date: 20171222
  Receipt Date: 20180702
  Transmission Date: 20181010
  Serious: Yes (Hospitalization)
  Sender: FDA-Public Use
  Company Number: IT-TEVA-2017-IT-838384

PATIENT
  Age: 6 Year
  Sex: Female
  Weight: 24 kg

DRUGS (26)
  1. METHOTREXATE. [Suspect]
     Active Substance: METHOTREXATE
     Indication: ALLOGENIC BONE MARROW TRANSPLANTATION THERAPY
     Dosage: 8.8 MILLIGRAM DAILY;
     Route: 042
     Dates: start: 20161223, end: 20161228
  2. URBASON [Concomitant]
     Active Substance: METHYLPREDNISOLONE
     Dosage: 24 MILLIGRAM DAILY;
     Dates: start: 20161220, end: 20161221
  3. CIPROFLOXACIN. [Concomitant]
     Active Substance: CIPROFLOXACIN
     Dosage: 500 MILLIGRAM DAILY;
     Route: 042
     Dates: start: 20161212, end: 20161229
  4. ACICLOVIR [Concomitant]
     Active Substance: ACYCLOVIR
     Dosage: 1350 MILLIGRAM DAILY;
     Dates: start: 20161219
  5. DELTACORTENE [Concomitant]
     Active Substance: PREDNISONE
     Dosage: 12.5 MILLIGRAM DAILY;
     Dates: start: 20161213, end: 20161220
  6. SANDIMMUN [Concomitant]
     Active Substance: CYCLOSPORINE
     Dosage: 72 MILLIGRAM DAILY;
     Dates: start: 20161220
  7. ALKERAN [Suspect]
     Active Substance: MELPHALAN
     Indication: ALLOGENIC BONE MARROW TRANSPLANTATION THERAPY
     Dosage: 123 MILLIGRAM DAILY;
     Route: 042
     Dates: start: 20161220, end: 20161220
  8. ANTI?THYMOCYTE GLOBULIN (RABBIT) NOS [Suspect]
     Active Substance: LAPINE T-LYMPHOCYTE IMMUNE GLOBULIN
     Indication: ALLOGENIC BONE MARROW TRANSPLANTATION THERAPY
     Dosage: 63 MILLIGRAM DAILY;
     Route: 042
     Dates: start: 20161220, end: 20161221
  9. EMEND [Concomitant]
     Active Substance: APREPITANT
     Dates: start: 20161214, end: 20161216
  10. TEGRETOL [Concomitant]
     Active Substance: CARBAMAZEPINE
     Dosage: 240 MILLIGRAM DAILY;
     Dates: start: 20161213, end: 20161218
  11. LEDERFOLIN [Concomitant]
     Active Substance: LEUCOVORIN CALCIUM
     Dosage: 4.4 MILLIGRAM DAILY;
     Dates: start: 20161224, end: 20161230
  12. HEPARIN SODIUM. [Concomitant]
     Active Substance: HEPARIN SODIUM
     Dosage: 2370 KU DAILY;
     Dates: start: 20161213
  13. BUSILVEX [Suspect]
     Active Substance: BUSULFAN
     Indication: ALLOGENIC BONE MARROW TRANSPLANTATION THERAPY
     Dosage: 90 MILLIGRAM DAILY;
     Route: 042
     Dates: start: 20161214, end: 20161217
  14. NYSTATIN. [Concomitant]
     Active Substance: NYSTATIN
     Dosage: 15 ML DAILY;
     Route: 048
     Dates: start: 20161212, end: 20170120
  15. ALOXI 500 MICROGRAMS SOFT CAPSULES [Concomitant]
     Dosage: 120 MILLIGRAM DAILY;
     Dates: start: 20161214, end: 20161217
  16. TRIMETON [Concomitant]
     Active Substance: CHLORPHENIRAMINE MALEATE
     Dosage: 10 MILLIGRAM DAILY;
     Dates: start: 20161220, end: 20161221
  17. RANITIDINE. [Concomitant]
     Active Substance: RANITIDINE
     Dosage: 100 MILLIGRAM DAILY;
     Dates: start: 20161213
  18. LASIX [Concomitant]
     Active Substance: FUROSEMIDE
     Dosage: 48 MILLIGRAM DAILY;
     Dates: start: 20161213
  19. PRIVIGEN [Concomitant]
     Active Substance: HUMAN IMMUNOGLOBULIN G
     Dosage: 10 GRAM DAILY;
     Dates: start: 20161217, end: 20170109
  20. PERFALGAN [Concomitant]
     Active Substance: ACETAMINOPHEN
     Dosage: 375 MILLIGRAM DAILY;
     Dates: start: 20161220, end: 20161221
  21. ENDOXAN BAXTER [Suspect]
     Active Substance: CYCLOPHOSPHAMIDE
     Indication: ALLOGENIC BONE MARROW TRANSPLANTATION THERAPY
     Dosage: 1420 MILLIGRAM DAILY;
     Route: 042
     Dates: start: 20161218, end: 20161219
  22. BACTRIM [Concomitant]
     Active Substance: SULFAMETHOXAZOLE\TRIMETHOPRIM
     Dosage: 10 ML DAILY;
     Dates: start: 20161218
  23. ITRACONAZOLE. [Concomitant]
     Active Substance: ITRACONAZOLE
     Dosage: 120 MILLIGRAM DAILY;
     Route: 048
     Dates: start: 20161212, end: 20161229
  24. URSODEOXYCHOLIC ACID [Concomitant]
     Active Substance: URSODIOL
     Dosage: 240 MILLIGRAM DAILY;
     Dates: start: 20161212, end: 20161220
  25. ACICLOVIR [Concomitant]
     Active Substance: ACYCLOVIR
     Dosage: 1800 MILLIGRAM DAILY;
     Dates: start: 20161212, end: 20161218
  26. DIAMINOCILLINA [Concomitant]
     Active Substance: PENICILLIN G BENZATHINE
     Dosage: 600000 MU DAILY;
     Dates: start: 20161213

REACTIONS (1)
  - Petechiae [Recovered/Resolved]

NARRATIVE: CASE EVENT DATE: 20161225
